FAERS Safety Report 18230470 (Version 1)
Quarter: 2020Q3

REPORT INFORMATION
  Report Type: Report from Study
  Country: None (occurrence: US)
  Receive Date: 20200904
  Receipt Date: 20200904
  Transmission Date: 20201103
  Serious: Yes (Other)
  Sender: FDA-Public Use
  Company Number: US-ABBVIE-20K-163-3551514-00

PATIENT
  Sex: Female

DRUGS (1)
  1. SKYRIZI [Suspect]
     Active Substance: RISANKIZUMAB-RZAA
     Indication: PSORIASIS
     Route: 058

REACTIONS (5)
  - Neuralgia [Unknown]
  - Foot fracture [Recovering/Resolving]
  - Limb injury [Recovering/Resolving]
  - Arterial disorder [Unknown]
  - Contusion [Unknown]

NARRATIVE: CASE EVENT DATE: 2014
